FAERS Safety Report 7027757-8 (Version None)
Quarter: 2010Q4

REPORT INFORMATION
  Report Type: 
  Country: None (occurrence: None)
  Receive Date: 20101005
  Receipt Date: 20100928
  Transmission Date: 20110411
  Serious: Yes (Hospitalization, Other)
  Sender: FDA-Public Use
  Company Number: DE-SHIRE-SPV1-2008-02400

PATIENT

DRUGS (1)
  1. XAGRID [Suspect]
     Indication: THROMBOCYTOSIS
     Dosage: 0.5 MG TID
     Route: 048
     Dates: start: 20071206

REACTIONS (1)
  - MYELITIS [None]
